FAERS Safety Report 22251414 (Version 2)
Quarter: 2023Q2

REPORT INFORMATION
  Report Type: Report from Study
  Country: DE (occurrence: DE)
  Receive Date: 20230425
  Receipt Date: 20230508
  Transmission Date: 20230722
  Serious: Yes (Hospitalization)
  Sender: FDA-Public Use
  Company Number: DE-SCYNEXIS, INC.-2023SCY000032

PATIENT
  Sex: Male
  Weight: 60.8 kg

DRUGS (6)
  1. IBREXAFUNGERP [Suspect]
     Active Substance: IBREXAFUNGERP
     Indication: Scopulariopsis infection
     Dosage: 750 MILLIGRAM, BID
     Route: 048
     Dates: start: 20190326, end: 20190327
  2. IBREXAFUNGERP [Suspect]
     Active Substance: IBREXAFUNGERP
     Indication: Osteitis
     Dosage: 750 MILLIGRAM, QD
     Route: 048
     Dates: start: 20190328, end: 20200507
  3. IBREXAFUNGERP [Suspect]
     Active Substance: IBREXAFUNGERP
     Indication: Soft tissue infection
  4. POSACONAZOLE [Suspect]
     Active Substance: POSACONAZOLE
     Indication: Scopulariopsis infection
     Dosage: 300 MILLIGRAM, QD
     Route: 048
     Dates: start: 20190903, end: 20200507
  5. POSACONAZOLE [Suspect]
     Active Substance: POSACONAZOLE
     Indication: Osteitis
  6. POSACONAZOLE [Suspect]
     Active Substance: POSACONAZOLE
     Indication: Soft tissue infection

REACTIONS (1)
  - Pneumonitis [Recovered/Resolved]

NARRATIVE: CASE EVENT DATE: 20200427
